FAERS Safety Report 6782339-8 (Version None)
Quarter: 2010Q2

REPORT INFORMATION
  Report Type: 
  Country: None (occurrence: None)
  Receive Date: 20100621
  Receipt Date: 20100610
  Transmission Date: 20101027
  Serious: Yes (Other)
  Sender: FDA-Public Use
  Company Number: JP-PFIZER INC-2010069514

PATIENT
  Age: 55 Year
  Sex: Female

DRUGS (4)
  1. AZULFIDINE [Suspect]
     Dosage: 1000 MG PER DAY
     Route: 048
     Dates: start: 20100520
  2. PREDNISOLONE [Suspect]
     Dosage: 20 MG DAILY
     Route: 048
  3. CELECOXIB [Concomitant]
  4. MUCOSTA [Concomitant]

REACTIONS (3)
  - CUSHINGOID [None]
  - FACE OEDEMA [None]
  - OEDEMA PERIPHERAL [None]
